FAERS Safety Report 9834919 (Version 1)
Quarter: 2014Q1

REPORT INFORMATION
  Report Type: Spontaneous
  Country: US (occurrence: US)
  Receive Date: 20140122
  Receipt Date: 20140122
  Transmission Date: 20141002
  Serious: No
  Sender: FDA-Public Use
  Company Number: US-BAUSCH-BL-2013-004854

PATIENT
  Age: 78 Year
  Sex: Male

DRUGS (2)
  1. ALAWAY (KETOTIFEN FUMARATE OPHTHALMIC SOLUTION) [Suspect]
     Indication: LACRIMATION INCREASED
     Dosage: ONE DROP INTO RIGHT EYE THREE TIMES DAILY
     Route: 047
     Dates: start: 201307, end: 20130827
  2. ALAWAY (KETOTIFEN FUMARATE OPHTHALMIC SOLUTION) [Suspect]
     Dosage: ONE DROP INTO LEFT EYE THREE TIMES DAILY
     Route: 047
     Dates: start: 201307, end: 20130827

REACTIONS (2)
  - Off label use [Recovered/Resolved]
  - Intraocular pressure increased [Not Recovered/Not Resolved]
